FAERS Safety Report 7035381-6 (Version None)
Quarter: 2010Q4

REPORT INFORMATION
  Report Type: 
  Country: None (occurrence: None)
  Receive Date: 20101008
  Receipt Date: 20100921
  Transmission Date: 20110411
  Serious: Yes (Other)
  Sender: FDA-Public Use
  Company Number: PHHY2010BR66240

PATIENT
  Age: 77 Year

DRUGS (2)
  1. RASILEZ HCT [Suspect]
     Dosage: 150/12.5 MG
  2. VI-FERRIN [Concomitant]

REACTIONS (5)
  - BLOOD UREA INCREASED [None]
  - CREATININE RENAL CLEARANCE DECREASED [None]
  - HEPATITIS B ANTIBODY POSITIVE [None]
  - HYPOTENSION [None]
  - RENAL TUBULAR DISORDER [None]
